FAERS Safety Report 16015577 (Version 1)
Quarter: 2019Q1

REPORT INFORMATION
  Report Type: Spontaneous
  Country: IT (occurrence: IT)
  Receive Date: 20190228
  Receipt Date: 20190228
  Transmission Date: 20190418
  Serious: Yes (Hospitalization)
  Sender: FDA-Public Use
  Company Number: IT-SUN PHARMACEUTICAL INDUSTRIES LTD-2019RR-200289

PATIENT
  Age: 38 Year
  Sex: Male

DRUGS (6)
  1. ESOMEPRAZOLE. [Suspect]
     Active Substance: ESOMEPRAZOLE MAGNESIUM
     Indication: INTENTIONAL SELF-INJURY
     Dosage: IN TOTAL
     Route: 048
     Dates: start: 20190202, end: 20190202
  2. OKI 80 MG GRANULATO PER SOLUZIONE ORALE [Suspect]
     Active Substance: KETOPROFEN LYSINE
     Indication: INTENTIONAL SELF-INJURY
     Dosage: IN TOTAL
     Route: 048
     Dates: start: 20190202, end: 20190202
  3. ATORVASTATIN [Suspect]
     Active Substance: ATORVASTATIN
     Indication: INTENTIONAL SELF-INJURY
     Dosage: IN TOTAL
     Route: 048
     Dates: start: 20190202, end: 20190202
  4. TACHIPIRINA 1000 MG COMPRESSE [Suspect]
     Active Substance: ACETAMINOPHEN
     Indication: INTENTIONAL SELF-INJURY
     Dosage: IN TOTAL
     Route: 048
     Dates: start: 20190202, end: 20190202
  5. AMOXICILLIN. [Suspect]
     Active Substance: AMOXICILLIN
     Indication: INTENTIONAL SELF-INJURY
     Dosage: IN TOTAL
     Route: 048
     Dates: start: 20190202, end: 20190202
  6. CARDIOASPIRIN 100 MG COMPRESSE GASTRORESISTENTI [Suspect]
     Active Substance: ASPIRIN
     Indication: INTENTIONAL SELF-INJURY
     Dosage: IN TOTAL
     Route: 048
     Dates: start: 20190202, end: 20190202

REACTIONS (3)
  - Agitation [Recovered/Resolved]
  - Intentional self-injury [Recovered/Resolved]
  - Drug abuse [Recovered/Resolved]

NARRATIVE: CASE EVENT DATE: 20190202
